FAERS Safety Report 5176929-6 (Version None)
Quarter: 2006Q4

REPORT INFORMATION
  Report Type: 
  Country: None (occurrence: None)
  Receive Date: 20061218
  Receipt Date: 20060808
  Transmission Date: 20070319
  Serious: Yes (Other)
  Sender: FDA-Public Use
  Company Number: PHEH2006US10201

PATIENT
  Age: 85 Year
  Sex: Female

DRUGS (13)
  1. SANDOSTATIN LAR [Suspect]
     Indication: CARCINOID SYNDROME
     Dosage: 20 MG Q28DAYS
  2. CITRUCEL [Concomitant]
  3. ASCORBIC ACID [Concomitant]
     Dosage: 500 MG, UNK
  4. CENTRUM [Concomitant]
  5. B12 [Concomitant]
     Dosage: UNK, QMO
  6. ATENOLOL [Concomitant]
     Dosage: 50 MG, QD
  7. CHOLESTYRAMINE [Concomitant]
     Dosage: 4 MG, BID
  8. DIPHENOXYLATE W/ATROPINE SULFATE [Concomitant]
     Dosage: 4 PER DAY
  9. HYDROCODONE W/APAP [Concomitant]
     Dosage: 7.5/750 MG PRN
  10. LEVOTHYROXINE SODIUM [Concomitant]
     Dosage: 0.5 MG, QD
  11. RELAFEN [Concomitant]
     Dosage: 500 MG, QD
  12. NORVASC [Concomitant]
     Dosage: 5 MG, QD
  13. METHYLPREDNISOLONE [Concomitant]
     Dosage: 4 MG, QD

REACTIONS (6)
  - ARTHRITIS [None]
  - DIARRHOEA [None]
  - OEDEMA PERIPHERAL [None]
  - PAIN IN EXTREMITY [None]
  - SURGERY [None]
  - SYNOVITIS [None]
